FAERS Safety Report 8660124 (Version 3)
Quarter: 2012Q4

REPORT INFORMATION
  Report Type: Report from Study
  Country: JP (occurrence: JP)
  Receive Date: 20120711
  Receipt Date: 20120907
  Transmission Date: 20130627
  Serious: Yes (Hospitalization)
  Sender: FDA-Public Use
  Company Number: JP-PFIZER INC-2012163953

PATIENT
  Age: 71 Year
  Sex: Female
  Weight: 49.4 kg

DRUGS (3)
  1. LIPITOR [Suspect]
     Indication: HYPERCHOLESTEROLAEMIA
     Dosage: 10 mg, UID/QD
     Route: 048
     Dates: start: 20110901, end: 20120119
  2. EXCEGRAN [Suspect]
     Indication: CONVULSION PROPHYLAXIS
     Dosage: 200 mg, Unknown/D
     Route: 048
     Dates: start: 20111208, end: 20120110
  3. RIVOTRIL [Concomitant]
     Indication: CONVULSION PROPHYLAXIS
     Dosage: UNK
     Route: 048
     Dates: start: 20110901, end: 20111207

REACTIONS (1)
  - Drug eruption [Recovering/Resolving]
